FAERS Safety Report 23279409 (Version 1)
Quarter: 2023Q4

REPORT INFORMATION
  Report Type: Spontaneous
  Country: US (occurrence: US)
  Receive Date: 20231209
  Receipt Date: 20231209
  Transmission Date: 20240110
  Serious: No
  Sender: FDA-Public Use
  Company Number: US-drreddys-SPO/USA/23/0188040

PATIENT
  Sex: Male

DRUGS (1)
  1. HABITROL [Suspect]
     Active Substance: NICOTINE
     Indication: Smoking cessation therapy
     Dosage: QUANTITY: 56 COUNT IN 1 CARTON
     Dates: start: 20231106, end: 20231108

REACTIONS (2)
  - Chest pain [Unknown]
  - Emergency care examination [Unknown]
